FAERS Safety Report 5458682-1 (Version None)
Quarter: 2007Q3

REPORT INFORMATION
  Report Type: 
  Country: None (occurrence: None)
  Receive Date: 20070919
  Receipt Date: 20070419
  Transmission Date: 20080115
  Serious: No
  Sender: FDA-Public Use
  Company Number: US-ASTRAZENECA-2007UW07727

PATIENT
  Age: 43 Year
  Sex: Female
  Weight: 79.4 kg

DRUGS (3)
  1. SEROQUEL [Suspect]
     Indication: BIPOLAR DISORDER
     Route: 048
     Dates: start: 20070413
  2. PEPSID [Concomitant]
  3. ADVIL LIQUI-GELS [Concomitant]

REACTIONS (3)
  - DYSPHAGIA [None]
  - NASOPHARYNGITIS [None]
  - SOMNOLENCE [None]
